FAERS Safety Report 10758427 (Version 1)
Quarter: 2015Q1

REPORT INFORMATION
  Report Type: Spontaneous
  Country: US (occurrence: None)
  Receive Date: 20150202
  Receipt Date: 20150202
  Transmission Date: 20150721
  Serious: Yes (Life-Threatening)
  Sender: FDA-Public Use
  Company Number: None

PATIENT
  Age: 90 Year
  Sex: Female
  Weight: 56.3 kg

DRUGS (2)
  1. CELECOXIB. [Suspect]
     Active Substance: CELECOXIB
  2. CELEBREX [Concomitant]
     Active Substance: CELECOXIB

REACTIONS (5)
  - Fall [None]
  - Urinary tract infection [None]
  - Mental status changes [None]
  - Subdural haematoma [None]
  - Pyrexia [None]

NARRATIVE: CASE EVENT DATE: 20140807
